FAERS Safety Report 6978341-3 (Version None)
Quarter: 2010Q3

REPORT INFORMATION
  Report Type: 
  Country: None (occurrence: None)
  Receive Date: 20100913
  Receipt Date: 20100906
  Transmission Date: 20110219
  Serious: Yes (Other)
  Sender: FDA-Public Use
  Company Number: GB-BAYER-201034503GPV

PATIENT
  Age: 67 Year
  Sex: Male

DRUGS (5)
  1. SORAFENIB OR PLACEBO [Suspect]
     Indication: RENAL CELL CARCINOMA
     Route: 048
     Dates: start: 20090513, end: 20100625
  2. AMLODIPINE [Concomitant]
  3. OMEPRAZOLE [Concomitant]
  4. AQUEOUS CREAM [Concomitant]
  5. CHLORPHENIRAMINE MALEATE [Concomitant]

REACTIONS (1)
  - RETINAL VEIN OCCLUSION [None]
